FAERS Safety Report 18920160 (Version 1)
Quarter: 2021Q1

REPORT INFORMATION
  Report Type: Other
  Country: CA (occurrence: CA)
  Receive Date: 20210222
  Receipt Date: 20210222
  Transmission Date: 20210420
  Serious: Yes (Other)
  Sender: FDA-Public Use
  Company Number: CA-CELLTRION INC.-2021CA002037

PATIENT

DRUGS (23)
  1. ACETYLSALICYLIC ACID [Concomitant]
     Active Substance: ASPIRIN
  2. ACYCLOVIR. [Concomitant]
     Active Substance: ACYCLOVIR
  3. FOLIC ACID. [Concomitant]
     Active Substance: FOLIC ACID
  4. RABEPRAZOLE [Concomitant]
     Active Substance: RABEPRAZOLE
  5. NAPROXEN. [Concomitant]
     Active Substance: NAPROXEN
  6. XERESE [Concomitant]
     Active Substance: ACYCLOVIR\HYDROCORTISONE
     Indication: ORAL HERPES
  7. RITUXIMAB (UNKNOWN) [Suspect]
     Active Substance: RITUXIMAB
     Indication: RHEUMATOID ARTHRITIS
     Dosage: 1000 MILLIGRAM, 1 EVERY 15 DAYS
     Route: 042
  8. AZATHIOPRINE. [Concomitant]
     Active Substance: AZATHIOPRINE
  9. BETAMETHASONE VALERATE. [Concomitant]
     Active Substance: BETAMETHASONE VALERATE
  10. METHOTREXATE. [Concomitant]
     Active Substance: METHOTREXATE
     Route: 065
  11. TRAMADOL. [Concomitant]
     Active Substance: TRAMADOL
  12. TYLENOL [Concomitant]
     Active Substance: ACETAMINOPHEN
     Dosage: 650 MILLIGRAM
     Route: 048
  13. NASACORT [Concomitant]
     Active Substance: TRIAMCINOLONE ACETONIDE
  14. VITAMIN D [Concomitant]
     Active Substance: VITAMIN D NOS
  15. BIOTIN [Concomitant]
     Active Substance: BIOTIN
  16. BREVICON [Concomitant]
     Active Substance: ETHINYL ESTRADIOL\NORETHINDRONE
  17. NORETHINDRONE. [Concomitant]
     Active Substance: NORETHINDRONE
  18. CANDESARTAN. [Concomitant]
     Active Substance: CANDESARTAN
  19. HYDROCHLOROTHIAZIDE. [Concomitant]
     Active Substance: HYDROCHLOROTHIAZIDE
  20. METHYLPREDNISOLONE SODIUM SUCCINATE. [Concomitant]
     Active Substance: METHYLPREDNISOLONE SODIUM SUCCINATE
     Indication: PREMEDICATION
     Dosage: 100 MILLIGRAM
     Route: 042
  21. AZATHIOPRINE. [Concomitant]
     Active Substance: AZATHIOPRINE
  22. ROSUVASTATIN. [Concomitant]
     Active Substance: ROSUVASTATIN
  23. VOLTAREN [DICLOFENAC] [Concomitant]
     Active Substance: DICLOFENAC SODIUM

REACTIONS (3)
  - Off label use [Unknown]
  - Abdominal pain [Unknown]
  - Haematochezia [Unknown]
